FAERS Safety Report 16062659 (Version 1)
Quarter: 2019Q1

REPORT INFORMATION
  Report Type: Report from Study
  Country: CA (occurrence: CA)
  Receive Date: 20190312
  Receipt Date: 20190312
  Transmission Date: 20190418
  Serious: Yes (Hospitalization)
  Sender: FDA-Public Use
  Company Number: CA-TAIHO ONCOLOGY  INC-EU-2019-00679

PATIENT
  Age: 75 Year
  Sex: Female

DRUGS (4)
  1. FRAGMIN [Concomitant]
     Active Substance: DALTEPARIN SODIUM
     Route: 058
  2. IMODIUM [Concomitant]
     Active Substance: LOPERAMIDE HYDROCHLORIDE
  3. LONSURF [Suspect]
     Active Substance: TIPIRACIL HYDROCHLORIDE\TRIFLURIDINE
     Dosage: CYCLE 2
     Route: 048
     Dates: start: 20190103, end: 20190114
  4. LONSURF [Suspect]
     Active Substance: TIPIRACIL HYDROCHLORIDE\TRIFLURIDINE
     Indication: PRODUCT USED FOR UNKNOWN INDICATION
     Dosage: CYCLE 1
     Route: 048
     Dates: start: 20181205, end: 20181216

REACTIONS (2)
  - Cytopenia [Unknown]
  - Heart injury [Unknown]

NARRATIVE: CASE EVENT DATE: 201901
